FAERS Safety Report 4312353-3 (Version None)
Quarter: 2004Q1

REPORT INFORMATION
  Report Type: 
  Country: None (occurrence: None)
  Receive Date: 20040303
  Receipt Date: 20040301
  Transmission Date: 20041129
  Serious: No
  Sender: FDA-Public Use
  Company Number: 200307576

PATIENT
  Age: 11 Year
  Sex: Male
  Weight: 65.318 kg

DRUGS (2)
  1. MOTRIN [Suspect]
     Indication: NASAL CONGESTION
     Dates: start: 20031122, end: 20031122
  2. MOTRIN [Suspect]
     Indication: PHARYNGOLARYNGEAL PAIN
     Dates: start: 20031122, end: 20031122

REACTIONS (12)
  - COUGH [None]
  - DIZZINESS [None]
  - EAR PAIN [None]
  - ERYTHEMA [None]
  - EYE SWELLING [None]
  - GOITRE [None]
  - HYPERSENSITIVITY [None]
  - NASAL OEDEMA [None]
  - OTITIS MEDIA [None]
  - PYREXIA [None]
  - SWELLING FACE [None]
  - URTICARIA [None]
